FAERS Safety Report 8398239-6 (Version None)
Quarter: 2012Q2

REPORT INFORMATION
  Report Type: 
  Country: None (occurrence: None)
  Receive Date: 20120531
  Receipt Date: 20120522
  Transmission Date: 20120825
  Serious: Yes (Hospitalization)
  Sender: FDA-Public Use
  Company Number: US-NOVOPROD-352329

PATIENT
  Age: 50 Year
  Sex: Female
  Weight: 78.005 kg

DRUGS (1)
  1. VICTOZA [Suspect]
     Indication: TYPE 2 DIABETES MELLITUS
     Dosage: 0.6 MG, QD
     Route: 058
     Dates: start: 20120501, end: 20120503

REACTIONS (4)
  - VOMITING [None]
  - TUBULOINTERSTITIAL NEPHRITIS [None]
  - NAUSEA [None]
  - RENAL FAILURE ACUTE [None]
